FAERS Safety Report 6358481-2 (Version None)
Quarter: 2009Q3

REPORT INFORMATION
  Report Type: 
  Country: None (occurrence: None)
  Receive Date: 20090916
  Receipt Date: 20081107
  Transmission Date: 20100115
  Serious: No
  Sender: FDA-Public Use
  Company Number: US-AMGEN-KDL317871

PATIENT
  Sex: Female

DRUGS (3)
  1. NEUPOGEN [Suspect]
     Indication: NEUTROPENIA
     Dates: start: 20080923
  2. PEGASYS [Concomitant]
  3. PROCRIT [Concomitant]
     Indication: PRE-EXISTING DISEASE

REACTIONS (1)
  - WHITE BLOOD CELL COUNT DECREASED [None]
